FAERS Safety Report 26091131 (Version 1)
Quarter: 2025Q4

REPORT INFORMATION
  Report Type: Report from Study
  Country: US (occurrence: US)
  Receive Date: 20251126
  Receipt Date: 20251126
  Transmission Date: 20260117
  Serious: Yes (Other)
  Sender: ALEXION PHARMACEUTICALS
  Company Number: US-AstraZeneca-CH-00999517A

PATIENT
  Sex: Female

DRUGS (1)
  1. ACALABRUTINIB [Suspect]
     Active Substance: ACALABRUTINIB
     Indication: Chronic lymphocytic leukaemia
     Dosage: 100 MILLIGRAM, BID
     Dates: start: 20200902

REACTIONS (8)
  - Thyroid cancer [Unknown]
  - Diarrhoea [Unknown]
  - Red blood cell count decreased [Unknown]
  - Computerised tomogram [Unknown]
  - Product dose omission issue [Unknown]
  - Blood thyroid stimulating hormone abnormal [Unknown]
  - Dehydration [Unknown]
  - Blood thyroid stimulating hormone abnormal [Unknown]
